FAERS Safety Report 10205087 (Version 1)
Quarter: 2014Q2

REPORT INFORMATION
  Report Type: Spontaneous
  Country: US (occurrence: None)
  Receive Date: 20140527
  Receipt Date: 20140527
  Transmission Date: 20141212
  Serious: Yes (Hospitalization)
  Sender: FDA-Public Use
  Company Number: None

PATIENT
  Age: 75 Year
  Sex: Female

DRUGS (6)
  1. PHENYTOIN [Suspect]
     Indication: CONVULSION PROPHYLAXIS
     Route: 042
     Dates: start: 20120527, end: 20120528
  2. GABAPENTIN [Concomitant]
  3. HEPARIN [Concomitant]
  4. INSULIN [Concomitant]
  5. LACOSAMIDE [Concomitant]
  6. LEVETIRACETAM [Concomitant]

REACTIONS (9)
  - Convulsion [None]
  - Mutism [None]
  - Aphasia [None]
  - Infusion site extravasation [None]
  - Infusion site swelling [None]
  - Staphylococcal bacteraemia [None]
  - Endocarditis [None]
  - Cellulitis [None]
  - Infusion site discolouration [None]
